FAERS Safety Report 17583221 (Version 2)
Quarter: 2020Q3

REPORT INFORMATION
  Report Type: Other
  Country: IT (occurrence: IT)
  Receive Date: 20200326
  Receipt Date: 20200805
  Transmission Date: 20201102
  Serious: Yes (Hospitalization)
  Sender: FDA-Public Use
  Company Number: IT-CELLTRION INC.-2020IT020801

PATIENT

DRUGS (2)
  1. PACLITAXEL KABI [Concomitant]
     Active Substance: PACLITAXEL
     Indication: BREAST NEOPLASM
     Dosage: 90 MG, 1 WEEK
     Route: 042
     Dates: start: 20191009, end: 20200206
  2. TRASTUZUMAB (UNKNOWN) [Suspect]
     Active Substance: TRASTUZUMAB
     Indication: BREAST NEOPLASM
     Dosage: 138 MG, 1 WEEK
     Route: 041
     Dates: start: 20191009, end: 20191009

REACTIONS (2)
  - Malaise [Recovered/Resolved]
  - Pyrexia [Recovered/Resolved]

NARRATIVE: CASE EVENT DATE: 20191009
